FAERS Safety Report 16069141 (Version 4)
Quarter: 2019Q3

REPORT INFORMATION
  Report Type: Report from Study
  Country: US (occurrence: US)
  Receive Date: 20190313
  Receipt Date: 20190718
  Transmission Date: 20191004
  Serious: Yes (Death, Other)
  Sender: FDA-Public Use
  Company Number: PHHY2018US201328

PATIENT
  Age: 78 Year
  Sex: Female

DRUGS (3)
  1. CYCLOPHOSPHAMIDE. [Concomitant]
     Active Substance: CYCLOPHOSPHAMIDE
     Indication: CHEMOTHERAPY
     Route: 065
  2. KYMRIAH [Suspect]
     Active Substance: TISAGENLECLEUCEL
     Indication: DIFFUSE LARGE B-CELL LYMPHOMA
     Dosage: UNK, ONCE/SINGLE
     Route: 041
     Dates: start: 2018
  3. FLUDARABINE [Concomitant]
     Active Substance: FLUDARABINE PHOSPHATE
     Indication: CHEMOTHERAPY
     Route: 065

REACTIONS (17)
  - Neutrophil count decreased [Recovered/Resolved]
  - Haemoglobin decreased [Unknown]
  - Malignant neoplasm progression [Fatal]
  - Depressed level of consciousness [Unknown]
  - Klebsiella infection [Unknown]
  - BK virus infection [Unknown]
  - Urinary tract infection viral [Unknown]
  - Viral sinusitis [Unknown]
  - Neurotoxicity [Recovered/Resolved]
  - Urinary tract infection bacterial [Unknown]
  - Viral upper respiratory tract infection [Unknown]
  - Lymphocyte count decreased [Unknown]
  - Human metapneumovirus test positive [Unknown]
  - Haematocrit decreased [Unknown]
  - Diffuse large B-cell lymphoma [Fatal]
  - Cytomegalovirus infection [Unknown]
  - Viral sepsis [Unknown]
